FAERS Safety Report 24467014 (Version 3)
Quarter: 2024Q4

REPORT INFORMATION
  Report Type: Spontaneous
  Country: CL (occurrence: CL)
  Receive Date: 20241018
  Receipt Date: 20241108
  Transmission Date: 20250115
  Serious: Yes (Hospitalization, Other)
  Sender: VERTEX
  Company Number: CL-VERTEX PHARMACEUTICALS-2024-016060

PATIENT
  Age: 7 Year
  Weight: 31 kg

DRUGS (3)
  1. TRIKAFTA [Suspect]
     Active Substance: ELEXACAFTOR\IVACAFTOR\TEZACAFTOR
     Indication: Cystic fibrosis
     Dosage: (ELEXACAFTOR 50 MG/TEZACAFTOR 25 MG/IVACAFTOR 37.5)
     Route: 048
     Dates: start: 202312
  2. TRIKAFTA [Suspect]
     Active Substance: ELEXACAFTOR\IVACAFTOR\TEZACAFTOR
     Dosage: 100 MG ELEXACAFTOR / 50 MG TEZACAFTOR / 75 MG IVACAFTOR 75 MG IVACAFTOR
     Route: 048
     Dates: start: 202408
  3. TRIKAFTA [Suspect]
     Active Substance: ELEXACAFTOR\IVACAFTOR\TEZACAFTOR
     Dosage: 2 TABS (100MG ELEX/50MG TEZA/75MG IVA), 1 TAB (150MG IVA)
     Route: 048

REACTIONS (2)
  - Encephalitis [Unknown]
  - Seizure [Not Recovered/Not Resolved]

NARRATIVE: CASE EVENT DATE: 20240101
